FAERS Safety Report 16564293 (Version 3)
Quarter: 2019Q3

REPORT INFORMATION
  Report Type: Spontaneous
  Country: JP (occurrence: JP)
  Receive Date: 20190712
  Receipt Date: 20190827
  Transmission Date: 20191004
  Serious: Yes (Other)
  Sender: FDA-Public Use
  Company Number: JP-GLAXOSMITHKLINE-JP2019JPN124696

PATIENT
  Age: 7 Decade
  Sex: Male

DRUGS (2)
  1. ZALUTIA [Concomitant]
     Active Substance: TADALAFIL
     Indication: BENIGN PROSTATIC HYPERPLASIA
     Dosage: 5 MG, QD
     Route: 048
     Dates: start: 201811, end: 20190821
  2. AVOLVE [Suspect]
     Active Substance: DUTASTERIDE
     Indication: BENIGN PROSTATIC HYPERPLASIA
     Dosage: UNK, QD
     Route: 048
     Dates: start: 201811, end: 20190821

REACTIONS (2)
  - Nipple pain [Unknown]
  - Prostate cancer stage I [Unknown]
